FAERS Safety Report 5933309-0 (Version None)
Quarter: 2008Q4

REPORT INFORMATION
  Report Type: 
  Country: None (occurrence: None)
  Receive Date: 20081028
  Receipt Date: 20081017
  Transmission Date: 20090506
  Serious: Yes (Other)
  Sender: FDA-Public Use
  Company Number: ZA-PFIZER INC-2008087607

PATIENT
  Age: 71 Year
  Sex: Female

DRUGS (1)
  1. EPANUTIN INJECTABLE [Suspect]
     Route: 042

REACTIONS (1)
  - GANGRENE [None]
